FAERS Safety Report 13549957 (Version 2)
Quarter: 2021Q3

REPORT INFORMATION
  Report Type: Spontaneous
  Country: GB (occurrence: GB)
  Receive Date: 20170516
  Receipt Date: 20210908
  Transmission Date: 20211014
  Serious: Yes (Other)
  Sender: FDA-Public Use
  Company Number: GB-SA-2017SA083546

PATIENT
  Age: 33 Year
  Sex: Male
  Weight: 101.4 kg

DRUGS (4)
  1. CHLORPHENAMINE [Suspect]
     Active Substance: CHLORPHENIRAMINE MALEATE
     Indication: OCULAR HYPERAEMIA
  2. CHLORPHENAMINE [Suspect]
     Active Substance: CHLORPHENIRAMINE MALEATE
     Indication: FLUSHING
  3. CHLORPHENAMINE [Suspect]
     Active Substance: CHLORPHENIRAMINE MALEATE
     Indication: LIP SWELLING
     Dosage: 10 MG
     Route: 042
     Dates: start: 20170504
  4. FABRAZYME [Suspect]
     Active Substance: AGALSIDASE BETA
     Indication: FABRY^S DISEASE
     Dosage: UNK UNK,UNK
     Route: 041
     Dates: start: 20170420

REACTIONS (7)
  - Confusional state [Recovering/Resolving]
  - Syncope [Recovered/Resolved]
  - Dyspnoea [Recovering/Resolving]
  - Lip swelling [Recovering/Resolving]
  - Ocular hyperaemia [Recovering/Resolving]
  - Flushing [Recovering/Resolving]
  - Somnolence [Unknown]

NARRATIVE: CASE EVENT DATE: 20170504
